FAERS Safety Report 10346987 (Version 1)
Quarter: 2014Q3

REPORT INFORMATION
  Report Type: Report from Study
  Country: CA (occurrence: CA)
  Receive Date: 20140729
  Receipt Date: 20140729
  Transmission Date: 20150326
  Serious: Yes (Other)
  Sender: FDA-Public Use
  Company Number: CA-ROCHE-1438556

PATIENT

DRUGS (4)
  1. CAPECITABINE [Suspect]
     Active Substance: CAPECITABINE
     Indication: METASTATIC SQUAMOUS CELL CARCINOMA
     Dosage: 14 DAYS EVERY 21 DAYS.CYCLE
     Route: 048
  2. VORINOSTAT [Suspect]
     Active Substance: VORINOSTAT
     Indication: NASOPHARYNGEAL CANCER
  3. CAPECITABINE [Suspect]
     Active Substance: CAPECITABINE
     Indication: NASOPHARYNGEAL CANCER
  4. VORINOSTAT [Suspect]
     Active Substance: VORINOSTAT
     Indication: METASTATIC SQUAMOUS CELL CARCINOMA
     Dosage: 14 DAYS EVERY 21 DAYS CYCLE
     Route: 048

REACTIONS (12)
  - Decreased appetite [Unknown]
  - Dehydration [Unknown]
  - Hypokalaemia [Unknown]
  - Palmar-plantar erythrodysaesthesia syndrome [Unknown]
  - Hypocalcaemia [Unknown]
  - Nausea [Unknown]
  - Hypophosphataemia [Unknown]
  - Anaemia [Unknown]
  - Hyponatraemia [Unknown]
  - Fatigue [Unknown]
  - Vomiting [Unknown]
  - Leukopenia [Unknown]
